FAERS Safety Report 8892193 (Version 2)
Quarter: 2012Q4

REPORT INFORMATION
  Report Type: 
  Country: US (occurrence: US)
  Receive Date: 20121107
  Receipt Date: 20121203
  Transmission Date: 20130627
  Serious: Yes (Hospitalization)
  Sender: FDA-Public Use
  Company Number: US-GILEAD-2012-0063653

PATIENT
  Age: 50 Year
  Sex: Male

DRUGS (3)
  1. LETAIRIS [Suspect]
     Indication: COR PULMONALE CHRONIC
     Dosage: 5 mg, QD
     Route: 048
     Dates: start: 20110506
  2. VENTAVIS [Concomitant]
  3. ADCIRCA [Concomitant]

REACTIONS (5)
  - Liver disorder [Unknown]
  - Hepatic embolisation [Unknown]
  - Blood potassium decreased [Unknown]
  - Anaemia [Unknown]
  - Oedema [Unknown]
